FAERS Safety Report 23548744 (Version 2)
Quarter: 2024Q1

REPORT INFORMATION
  Report Type: Report from Study
  Country: IT (occurrence: IT)
  Receive Date: 20240221
  Receipt Date: 20240227
  Transmission Date: 20240410
  Serious: Yes (Other)
  Sender: FDA-Public Use
  Company Number: IT-002147023-NVSC2024IT027427

PATIENT
  Age: 63 Year
  Sex: Male

DRUGS (4)
  1. MYCOPHENOLATE MOFETIL [Suspect]
     Active Substance: MYCOPHENOLATE MOFETIL
     Indication: Product used for unknown indication
     Dosage: UNK
     Route: 065
  2. TACROLIMUS [Suspect]
     Active Substance: TACROLIMUS
     Indication: Transplant
     Dosage: UNK
     Route: 065
     Dates: start: 2012
  3. TACROLIMUS [Suspect]
     Active Substance: TACROLIMUS
     Dosage: UNK (LOW DOSES)
     Route: 065
  4. EVEROLIMUS [Suspect]
     Active Substance: EVEROLIMUS
     Indication: Transplant
     Dosage: UNK
     Route: 065
     Dates: start: 2013

REACTIONS (13)
  - Bronchopleural fistula [Unknown]
  - Renal tubular injury [Unknown]
  - Biliary ischaemia [Unknown]
  - Cholangitis [Unknown]
  - Bladder cancer [Recovering/Resolving]
  - Renal impairment [Unknown]
  - Lung squamous cell carcinoma stage II [Unknown]
  - Skin cancer [Recovering/Resolving]
  - Pulmonary mass [Unknown]
  - Proteinuria [Unknown]
  - Hepatic function abnormal [Unknown]
  - Jaundice [Unknown]
  - Stenosis [Unknown]

NARRATIVE: CASE EVENT DATE: 20120101
